FAERS Safety Report 10058496 (Version 1)
Quarter: 2014Q2

REPORT INFORMATION
  Report Type: Spontaneous
  Country: US (occurrence: US)
  Receive Date: 20140404
  Receipt Date: 20140404
  Transmission Date: 20141212
  Serious: Yes (Hospitalization, Other)
  Sender: FDA-Public Use
  Company Number: US-DRREDDYS-USA/USA/14/0039311

PATIENT
  Age: 55 Year
  Sex: Female

DRUGS (1)
  1. IBANDRONATE SODIUM TABLETS 150 MG [Suspect]
     Indication: PRODUCT USED FOR UNKNOWN INDICATION
     Route: 065

REACTIONS (1)
  - Arrhythmia [Recovered/Resolved]
